FAERS Safety Report 15296308 (Version 1)
Quarter: 2018Q3

REPORT INFORMATION
  Report Type: Spontaneous
  Country: US (occurrence: US)
  Receive Date: 20180805
  Receipt Date: 20180805
  Transmission Date: 20181010
  Serious: No
  Sender: FDA-Public Use
  Company Number: None

PATIENT
  Age: 35 Year
  Sex: Female
  Weight: 58.97 kg

DRUGS (1)
  1. MIRENA [Suspect]
     Active Substance: LEVONORGESTREL

REACTIONS (7)
  - Pyrexia [None]
  - Abdominal pain lower [None]
  - Muscle spasms [None]
  - Haemorrhage [None]
  - Infertility female [None]
  - Pain [None]
  - Dyspareunia [None]
